FAERS Safety Report 9685223 (Version 1)
Quarter: 2013Q4

REPORT INFORMATION
  Report Type: Spontaneous
  Country: US (occurrence: US)
  Receive Date: 20131113
  Receipt Date: 20131113
  Transmission Date: 20140711
  Serious: Yes (Other)
  Sender: FDA-Public Use
  Company Number: US-SA-2013SA116240

PATIENT
  Age: 60 Year
  Sex: Female

DRUGS (5)
  1. APIDRA SOLOSTAR [Suspect]
     Indication: TYPE 2 DIABETES MELLITUS
     Dosage: 16/16/25 UNITS
     Route: 058
  2. Z-PAK [Suspect]
     Route: 065
  3. SOLOSTAR [Concomitant]
     Indication: TYPE 2 DIABETES MELLITUS
  4. INSULIN [Concomitant]
  5. INSULIN [Concomitant]
     Dosage: DOSE:46 UNIT(S)

REACTIONS (2)
  - Sinusitis [Unknown]
  - Malaise [Unknown]
